FAERS Safety Report 6230473-3 (Version None)
Quarter: 2009Q2

REPORT INFORMATION
  Report Type: 
  Country: None (occurrence: None)
  Receive Date: 20090611
  Receipt Date: 20090610
  Transmission Date: 20091009
  Serious: Yes (Other)
  Sender: FDA-Public Use
  Company Number: 09-223

PATIENT
  Age: 65 Year
  Sex: Female

DRUGS (15)
  1. ALEVE [Suspect]
     Indication: ARTHRALGIA
     Dosage: 220MG, DAILY, ORAL; 660MG, DAILY, ORAL
     Route: 048
  2. ALEVE [Suspect]
     Indication: JOINT SPRAIN
     Dosage: 220MG, DAILY, ORAL; 660MG, DAILY, ORAL
     Route: 048
  3. ALEVE [Suspect]
     Indication: ARTHRALGIA
     Dosage: 220MG, DAILY, ORAL; 660MG, DAILY, ORAL
     Route: 048
     Dates: start: 20090401
  4. ALEVE [Suspect]
     Indication: JOINT SPRAIN
     Dosage: 220MG, DAILY, ORAL; 660MG, DAILY, ORAL
     Route: 048
     Dates: start: 20090401
  5. ALEVE [Suspect]
  6. JOINT FUEL [Concomitant]
  7. FLUID MOTION [Concomitant]
  8. VITAMIN D [Concomitant]
  9. MAX EPA [Concomitant]
  10. B 100 [Concomitant]
  11. GINSANA [Concomitant]
  12. BONE UP CALCIUM [Concomitant]
  13. CINIMIN [Concomitant]
  14. CALCIUM B12 [Concomitant]
  15. IRON [Concomitant]

REACTIONS (5)
  - BALANCE DISORDER [None]
  - BLOOD PRESSURE FLUCTUATION [None]
  - HYPERTENSION [None]
  - INAPPROPRIATE SCHEDULE OF DRUG ADMINISTRATION [None]
  - TENSION HEADACHE [None]
